FAERS Safety Report 4943371-X (Version None)
Quarter: 2006Q1

REPORT INFORMATION
  Report Type: 
  Country: None (occurrence: None)
  Receive Date: 20060314
  Receipt Date: 20060307
  Transmission Date: 20060701
  Serious: Yes (Other)
  Sender: FDA-Public Use
  Company Number: GB-AVENTIS-200612231GDDC

PATIENT
  Sex: Female

DRUGS (1)
  1. ARAVA [Suspect]

REACTIONS (1)
  - POLYMYOSITIS [None]
